FAERS Safety Report 10152761 (Version 1)
Quarter: 2014Q2

REPORT INFORMATION
  Report Type: Report from Study
  Country: AU (occurrence: AU)
  Receive Date: 20140505
  Receipt Date: 20140505
  Transmission Date: 20141212
  Serious: Yes (Other)
  Sender: FDA-Public Use
  Company Number: AU-VERTEX PHARMACEUTICALS INC-2014-002179

PATIENT
  Age: 44 Year
  Sex: Female

DRUGS (5)
  1. TELAPREVIR [Suspect]
     Indication: HEPATITIS C
     Route: 048
  2. PEG-INTERFERON [Suspect]
     Indication: HEPATITIS C
     Dosage: UNK
     Route: 065
     Dates: start: 20140228
  3. RIBAVIRIN [Suspect]
     Indication: HEPATITIS C
     Dosage: UNK
     Route: 065
     Dates: start: 20140228
  4. SERTRALINE [Concomitant]
     Indication: ANXIETY
  5. SERTRALINE [Concomitant]
     Dosage: 200 MG, UNK

REACTIONS (2)
  - Rash [Unknown]
  - Full blood count abnormal [Unknown]
